FAERS Safety Report 9137023 (Version 1)
Quarter: 2013Q1

REPORT INFORMATION
  Report Type: Spontaneous
  Country: US (occurrence: US)
  Receive Date: 20130304
  Receipt Date: 20130304
  Transmission Date: 20140127
  Serious: No
  Sender: FDA-Public Use
  Company Number: US-COVIDIEN/TYCO HEALTHCARE/MALLINCKRODT-T201300801

PATIENT
  Age: 58 Year
  Sex: Male

DRUGS (1)
  1. SODIUM IODIDE [Suspect]
     Indication: IMAGING PROCEDURE
     Dosage: 200 ?CI
     Route: 048
     Dates: start: 20130204, end: 20130204

REACTIONS (1)
  - Drug ineffective [Unknown]
